FAERS Safety Report 7978821-8 (Version None)
Quarter: 2011Q4

REPORT INFORMATION
  Report Type: 
  Country: None (occurrence: None)
  Receive Date: 20111214
  Receipt Date: 20111208
  Transmission Date: 20120403
  Serious: Yes (Hospitalization)
  Sender: FDA-Public Use
  Company Number: US-BRISTOL-MYERS SQUIBB COMPANY-16280265

PATIENT
  Age: 46 Year
  Sex: Male
  Weight: 83 kg

DRUGS (4)
  1. CISPLATIN [Suspect]
     Indication: OESOPHAGEAL ADENOCARCINOMA
     Dosage: LAST DOSE: 17NOV2011
     Dates: start: 20111011
  2. DIOVAN [Concomitant]
  3. ERBITUX [Suspect]
     Indication: OESOPHAGEAL ADENOCARCINOMA
     Dosage: LAST DOSE: 17NOV2011
     Dates: start: 20111011
  4. TAXOL [Suspect]
     Indication: OESOPHAGEAL ADENOCARCINOMA
     Dosage: LAST DOSE: 17NOV2011
     Dates: start: 20111011

REACTIONS (4)
  - EMBOLISM [None]
  - SYNCOPE [None]
  - DEHYDRATION [None]
  - ANAEMIA [None]
